FAERS Safety Report 5023827-4 (Version None)
Quarter: 2006Q2

REPORT INFORMATION
  Report Type: 
  Country: None (occurrence: None)
  Receive Date: 20060606
  Receipt Date: 20060522
  Transmission Date: 20061013
  Serious: Yes (Life-Threatening)
  Sender: FDA-Public Use
  Company Number: 225362

PATIENT
  Age: 42 Year
  Sex: Male
  Weight: 64.9 kg

DRUGS (4)
  1. RITUXAN [Suspect]
     Indication: NON-HODGKIN'S LYMPHOMA
     Dosage: 679 MG, Q3W, INTRAVENOUS
     Route: 042
     Dates: start: 20060509
  2. PHENOBARBITAL TAB [Concomitant]
  3. ALLOPURINOL [Concomitant]
  4. ENOXAPARIN SODIUM [Concomitant]

REACTIONS (7)
  - BLOOD PRESSURE SYSTOLIC INCREASED [None]
  - CARDIOTOXICITY [None]
  - CHILLS [None]
  - CYANOSIS [None]
  - PERICARDIAL EFFUSION [None]
  - PULMONARY TOXICITY [None]
  - SINUS TACHYCARDIA [None]
